FAERS Safety Report 6607675-7 (Version None)
Quarter: 2010Q1

REPORT INFORMATION
  Report Type: 
  Country: None (occurrence: None)
  Receive Date: 20100301
  Receipt Date: 20100219
  Transmission Date: 20100710
  Serious: Yes (Other)
  Sender: FDA-Public Use
  Company Number: FR-ASTRAZENECA-2010SE07586

PATIENT
  Age: 54 Year
  Sex: Male

DRUGS (2)
  1. NOLVADEX [Suspect]
     Indication: DESMOID TUMOUR
     Route: 048
     Dates: start: 20050101
  2. SULINDAC [Concomitant]
     Indication: DESMOID TUMOUR
     Dates: start: 20050101

REACTIONS (1)
  - LUNG DISORDER [None]
